FAERS Safety Report 8766256 (Version 1)
Quarter: 2012Q4

REPORT INFORMATION
  Report Type: 
  Country: UY (occurrence: UY)
  Receive Date: 20120904
  Receipt Date: 20120904
  Transmission Date: 20130627
  Serious: Yes (Hospitalization)
  Sender: FDA-Public Use
  Company Number: UY-ASTRAZENECA-2012SE69339

PATIENT
  Age: 4 Month
  Sex: Female
  Weight: 4.9 kg

DRUGS (2)
  1. SYNAGIS [Suspect]
     Indication: ANTIVIRAL PROPHYLAXIS
     Route: 030
     Dates: start: 201206, end: 201206
  2. SYNAGIS [Suspect]
     Indication: ANTIVIRAL PROPHYLAXIS
     Route: 030
     Dates: start: 201208, end: 201208

REACTIONS (2)
  - Bronchiolitis [Recovered/Resolved]
  - Respiratory syncytial virus test positive [Unknown]
